FAERS Safety Report 6386870-9 (Version None)
Quarter: 2009Q4

REPORT INFORMATION
  Report Type: 
  Country: None (occurrence: None)
  Receive Date: 20091002
  Receipt Date: 20090923
  Transmission Date: 20100525
  Serious: Yes (Hospitalization, Disabling)
  Sender: FDA-Public Use
  Company Number: NZ-PURDUE-USA-2009-0039977

PATIENT
  Sex: Female

DRUGS (1)
  1. OXYCONTIN [Suspect]
     Indication: PROCEDURAL PAIN
     Dosage: UNK
     Dates: start: 20070401

REACTIONS (3)
  - COLITIS ISCHAEMIC [None]
  - CONSTIPATION [None]
  - LARGE INTESTINE PERFORATION [None]
